FAERS Safety Report 5368939-0 (Version None)
Quarter: 2007Q2

REPORT INFORMATION
  Report Type: 
  Country: None (occurrence: None)
  Receive Date: 20070625
  Receipt Date: 20061201
  Transmission Date: 20071010
  Serious: No
  Sender: FDA-Public Use
  Company Number: US-ASTRAZENECA-2006UW26864

PATIENT
  Age: 78 Year
  Sex: Female
  Weight: 70.3 kg

DRUGS (11)
  1. CRESTOR [Suspect]
     Indication: BLOOD CHOLESTEROL INCREASED
     Route: 048
  2. PLAVIX [Concomitant]
  3. ASPIRIN [Concomitant]
  4. NORVASC [Concomitant]
  5. TOPROL-XL [Concomitant]
  6. DIOVAN [Concomitant]
  7. METFORMIN HCL [Concomitant]
  8. CLONAZEPAM [Concomitant]
  9. CITRACAL [Concomitant]
  10. VITAMIN E [Concomitant]
  11. VITAMIN B [Concomitant]

REACTIONS (2)
  - ALOPECIA [None]
  - MUSCULAR WEAKNESS [None]
